FAERS Safety Report 22744280 (Version 4)
Quarter: 2025Q2

REPORT INFORMATION
  Report Type: Report from Study
  Country: US (occurrence: US)
  Receive Date: 20230724
  Receipt Date: 20250626
  Transmission Date: 20250716
  Serious: Yes (Other)
  Sender: AURINIA PHARMACEUTICALS
  Company Number: US-OTSUKA PHARMACEUTICAL NETHERLANDS B.V.-AUR-003880

PATIENT
  Age: 28 Year
  Sex: Female

DRUGS (4)
  1. LUPKYNIS [Suspect]
     Active Substance: VOCLOSPORIN
     Indication: Lupus nephritis
     Dosage: 23.7 MILLIGRAM, BID
     Route: 048
     Dates: start: 20220902
  2. LUPKYNIS [Suspect]
     Active Substance: VOCLOSPORIN
     Dosage: 23.7 MILLIGRAM, BID
     Route: 048
  3. LUPKYNIS [Suspect]
     Active Substance: VOCLOSPORIN
     Dosage: 23.7 MILLIGRAM, BID
     Route: 048
  4. MYCOPHENOLATE MOFETIL [Concomitant]
     Active Substance: MYCOPHENOLATE MOFETIL
     Indication: Product used for unknown indication
     Dosage: 250 MILLIGRAM, BID

REACTIONS (13)
  - Urine protein/creatinine ratio increased [Unknown]
  - Proteinuria [Not Recovered/Not Resolved]
  - Albuminuria [Unknown]
  - Double stranded DNA antibody positive [Unknown]
  - Complement factor C3 decreased [Unknown]
  - Blood urine present [Unknown]
  - White blood cells urine positive [Unknown]
  - Chest pain [Unknown]
  - Nausea [Unknown]
  - Urine abnormality [Not Recovered/Not Resolved]
  - Oedema peripheral [Unknown]
  - Headache [Unknown]
  - Treatment noncompliance [Unknown]

NARRATIVE: CASE EVENT DATE: 20250415
